FAERS Safety Report 15932915 (Version 1)
Quarter: 2019Q1

REPORT INFORMATION
  Report Type: Spontaneous
  Country: US (occurrence: US)
  Receive Date: 20190207
  Receipt Date: 20190207
  Transmission Date: 20190417
  Serious: No
  Sender: FDA-Public Use
  Company Number: US-MYLANLABS-2019M1006455

PATIENT

DRUGS (5)
  1. CLONIDINE TRANSDERMAL SYSTEM [Suspect]
     Active Substance: CLONIDINE
     Indication: HYPERTENSION
     Dosage: UNK
     Route: 062
  2. BYSTOLIC [Concomitant]
     Active Substance: NEBIVOLOL HYDROCHLORIDE
     Dosage: UNK UNK, BID
  3. AMLODIPINE [Concomitant]
     Active Substance: AMLODIPINE BESYLATE
     Dosage: UNK UNK, PRN
  4. ALDACTONE [Concomitant]
     Active Substance: SPIRONOLACTONE
     Dosage: UNK UNK, PRN
  5. CORTISONE [Concomitant]
     Active Substance: CORTISONE\HYDROCORTISONE
     Dosage: UNK

REACTIONS (11)
  - Hypertension [Recovering/Resolving]
  - Application site reaction [Not Recovered/Not Resolved]
  - Dysstasia [Recovering/Resolving]
  - Hypotension [Recovering/Resolving]
  - Application site pruritus [Not Recovered/Not Resolved]
  - Headache [Recovered/Resolved]
  - Application site erythema [Not Recovered/Not Resolved]
  - Drug effect decreased [Not Recovered/Not Resolved]
  - Application site irritation [Not Recovered/Not Resolved]
  - Asthenia [Recovering/Resolving]
  - Application site mass [Not Recovered/Not Resolved]
